FAERS Safety Report 5851848-8 (Version None)
Quarter: 2008Q3

REPORT INFORMATION
  Report Type: 
  Country: None (occurrence: None)
  Receive Date: 20080819
  Receipt Date: 20080804
  Transmission Date: 20090109
  Serious: Yes (Hospitalization)
  Sender: FDA-Public Use
  Company Number: DSJ-2008-09878

PATIENT
  Age: 77 Year
  Sex: Male
  Weight: 65 kg

DRUGS (8)
  1. OLMESARTAN MEDOXOMIL [Suspect]
     Indication: ESSENTIAL HYPERTENSION
     Dosage: 10 MG (10 MG, 1 IN 1 D), PER ORAL
     Route: 048
     Dates: start: 20060628
  2. CALBLOCK (AZELNIDIPINE) (TABLET) (AZELNIDIPINE) [Suspect]
     Dosage: 16 MG (16 MG, 1 IN 1 D) PER ORAL
     Route: 048
     Dates: end: 20060927
  3. PANALDINE (TICLOPIDINE HYDROCHLORIDE) (TABLET) (TICLOPIDINE HYDROCHLOR [Concomitant]
  4. YOUCOBAL (HYDROXOCOBALAMIN ACETATE) (TABLET) (HYDROXOCOBALAMIN ACETATE [Concomitant]
  5. MELBIN (METFORMIN HYDROCHLORIDE) (TABLET) (METFORMIN HYDROCHLORIDE) [Concomitant]
  6. BEZATOL SR (BEZAFIBRATE) (TABLET) (BEZAFIBRATE) [Concomitant]
  7. PLETAAL (CILOSTAZOL) (TABLET) (CILOSTAZOL) [Concomitant]
  8. FLUITRAN (TRICHLORMETHIAZIDE) (TRICHLORMETHIAZIDE) [Concomitant]

REACTIONS (4)
  - ATRIOVENTRICULAR BLOCK SECOND DEGREE [None]
  - BRADYCARDIA [None]
  - CONDITION AGGRAVATED [None]
  - RENAL IMPAIRMENT [None]
